FAERS Safety Report 23118082 (Version 1)
Quarter: 2023Q4

REPORT INFORMATION
  Report Type: Spontaneous
  Country: CN (occurrence: None)
  Receive Date: 20231027
  Receipt Date: 20231027
  Transmission Date: 20240110
  Serious: Yes (Hospitalization)
  Sender: FDA-Public Use
  Company Number: 2023A241568

PATIENT
  Age: 29212 Day
  Sex: Male
  Weight: 65 kg

DRUGS (1)
  1. DAPAGLIFLOZIN [Suspect]
     Active Substance: DAPAGLIFLOZIN
     Indication: Cardiac failure
     Route: 048
     Dates: start: 20231016, end: 20231016

REACTIONS (11)
  - Hypotension [Recovering/Resolving]
  - Breath sounds abnormal [Unknown]
  - Rales [Unknown]
  - Somnolence [Unknown]
  - Mental impairment [Unknown]
  - Aphasia [Unknown]
  - Anisocoria [Unknown]
  - Pupillary reflex impaired [Unknown]
  - Gaze palsy [Unknown]
  - Muscle strength abnormal [Unknown]
  - Unresponsive to stimuli [Unknown]

NARRATIVE: CASE EVENT DATE: 20231016
